FAERS Safety Report 6251576-3 (Version None)
Quarter: 2009Q2

REPORT INFORMATION
  Report Type: 
  Country: None (occurrence: None)
  Receive Date: 20090630
  Receipt Date: 20090625
  Transmission Date: 20091009
  Serious: Yes (Hospitalization)
  Sender: FDA-Public Use
  Company Number: KR-ELI_LILLY_AND_COMPANY-KR200906004470

PATIENT
  Age: 63 Year
  Sex: Female

DRUGS (3)
  1. HUMALOG MIX 75/25 [Suspect]
     Indication: TYPE 2 DIABETES MELLITUS
     Dosage: 24 U, 2/D SINCE 1-JUN-2009, 20 U, 2/D FROM 28-MAY-2009 TO 31-MAY-2009
     Route: 058
     Dates: start: 20090528, end: 20090531
  2. HUMALOG MIX 75/25 [Suspect]
     Dosage: 48 IU, DAILY (1/D)
     Route: 058
     Dates: start: 20090601
  3. LANTUS [Concomitant]

REACTIONS (1)
  - HYPERPYREXIA [None]
